FAERS Safety Report 6119580-3 (Version None)
Quarter: 2009Q1

REPORT INFORMATION
  Report Type: 
  Country: None (occurrence: None)
  Receive Date: 20090316
  Receipt Date: 20090313
  Transmission Date: 20090719
  Serious: Yes (Hospitalization)
  Sender: FDA-Public Use
  Company Number: D0060436A

PATIENT
  Age: 25 Year
  Sex: Male
  Weight: 70 kg

DRUGS (5)
  1. ELONTRIL [Suspect]
     Route: 048
     Dates: start: 20090201
  2. ATOSIL [Suspect]
     Route: 048
     Dates: start: 20090201
  3. ZOPICLON [Suspect]
     Dosage: 150MG SINGLE DOSE
     Route: 048
     Dates: start: 20090201
  4. AKINETON [Suspect]
     Dosage: 150MG SINGLE DOSE
     Route: 048
     Dates: start: 20090201
  5. DOMINAL [Suspect]
     Route: 048
     Dates: start: 20090201

REACTIONS (8)
  - AGITATION [None]
  - CONFUSIONAL STATE [None]
  - CONVULSION [None]
  - GAIT DISTURBANCE [None]
  - INTENTIONAL OVERDOSE [None]
  - MYDRIASIS [None]
  - SUICIDE ATTEMPT [None]
  - TACHYCARDIA [None]
